FAERS Safety Report 4675947-1 (Version None)
Quarter: 2005Q2

REPORT INFORMATION
  Report Type: 
  Country: None (occurrence: None)
  Receive Date: 20050527
  Receipt Date: 20050310
  Transmission Date: 20051028
  Serious: No
  Sender: FDA-Public Use
  Company Number: US-GLAXOSMITHKLINE-A0549272A

PATIENT
  Age: 55 Year
  Sex: Male
  Weight: 69.1 kg

DRUGS (1)
  1. WELLBUTRIN XL [Suspect]
     Indication: DRUG USE FOR UNKNOWN INDICATION
     Dosage: 100MG PER DAY
     Route: 048
     Dates: start: 20050201

REACTIONS (2)
  - FATIGUE [None]
  - THERAPEUTIC RESPONSE DECREASED [None]
